FAERS Safety Report 24613121 (Version 1)
Quarter: 2024Q4

REPORT INFORMATION
  Report Type: Spontaneous
  Country: ZA (occurrence: ZA)
  Receive Date: 20241113
  Receipt Date: 20241113
  Transmission Date: 20250115
  Serious: Yes (Other)
  Sender: ROCHE
  Company Number: ZA-ROCHE-10000126214

PATIENT
  Sex: Female

DRUGS (5)
  1. RITUXIMAB [Suspect]
     Active Substance: RITUXIMAB
     Indication: Product used for unknown indication
     Route: 042
     Dates: start: 202309
  2. PREDNISONE [Concomitant]
     Active Substance: PREDNISONE
     Dates: start: 201605
  3. LEFLUNOMIDE [Concomitant]
     Active Substance: LEFLUNOMIDE
     Dates: start: 202011
  4. METHOTREXATE [Concomitant]
     Active Substance: METHOTREXATE
     Dates: start: 201202
  5. ETORICOXIB [Concomitant]
     Active Substance: ETORICOXIB
     Dates: start: 202002

REACTIONS (7)
  - Arthritis [Unknown]
  - Rash [Unknown]
  - Blister [Unknown]
  - Pruritus [Unknown]
  - Haemorrhage [Unknown]
  - Haemorrhage [Unknown]
  - Inflammation [Unknown]
